FAERS Safety Report 6137860-2 (Version None)
Quarter: 2009Q1

REPORT INFORMATION
  Report Type: 
  Country: None (occurrence: None)
  Receive Date: 20090331
  Receipt Date: 20090321
  Transmission Date: 20090719
  Serious: Yes (Other)
  Sender: FDA-Public Use
  Company Number: US-AMGEN-TCS339678

PATIENT
  Sex: Female

DRUGS (1)
  1. ENBREL [Suspect]
     Indication: PSORIATIC ARTHROPATHY
     Route: 058
     Dates: start: 20071110

REACTIONS (7)
  - ABDOMINAL PAIN [None]
  - CHOLECYSTECTOMY [None]
  - DRY EYE [None]
  - DYSPEPSIA [None]
  - EYE PAIN [None]
  - METAMORPHOPSIA [None]
  - PYREXIA [None]
